FAERS Safety Report 15241649 (Version 1)
Quarter: 2018Q3

REPORT INFORMATION
  Report Type: Spontaneous
  Country: US (occurrence: US)
  Receive Date: 20180805
  Receipt Date: 20180805
  Transmission Date: 20181010
  Serious: Yes (Death, Other)
  Sender: FDA-Public Use
  Company Number: PHEH2018US031665

PATIENT
  Age: 53 Year
  Sex: Male

DRUGS (1)
  1. VOTRIENT [Suspect]
     Active Substance: PAZOPANIB HYDROCHLORIDE
     Indication: EPITHELIOID SARCOMA
     Dosage: 800 MG, QD (4 TABLETS AT THE SAME TIME ON EMPTY STOMACH)
     Route: 048
     Dates: start: 20180203, end: 20180323

REACTIONS (3)
  - Seizure [Unknown]
  - Haemorrhage intracranial [Unknown]
  - Epithelioid sarcoma [Fatal]

NARRATIVE: CASE EVENT DATE: 20180323
